FAERS Safety Report 25407779 (Version 9)
Quarter: 2025Q3

REPORT INFORMATION
  Report Type: Report from Study
  Country: US (occurrence: US)
  Receive Date: 20250606
  Receipt Date: 20250903
  Transmission Date: 20251020
  Serious: Yes (Life-Threatening, Hospitalization, Other)
  Sender: CSL BEHRING
  Company Number: US-BEH-2025206770

PATIENT
  Age: 34 Year
  Sex: Female
  Weight: 109.77 kg

DRUGS (16)
  1. BERINERT [Suspect]
     Active Substance: HUMAN C1-ESTERASE INHIBITOR
     Indication: Hereditary angioedema
     Dosage: 7000 IU/KG, BIW
     Route: 065
     Dates: start: 20200603
  2. BERINERT [Suspect]
     Active Substance: HUMAN C1-ESTERASE INHIBITOR
     Indication: Prophylaxis
     Dosage: 7000 IU/KG, BIW
     Route: 058
  3. BERINERT [Suspect]
     Active Substance: HUMAN C1-ESTERASE INHIBITOR
     Dosage: 7000 IU/KG, BIW
     Route: 065
  4. BERINERT [Suspect]
     Active Substance: HUMAN C1-ESTERASE INHIBITOR
     Route: 058
  5. BERINERT [Suspect]
     Active Substance: HUMAN C1-ESTERASE INHIBITOR
     Dosage: 7000 IU/KG, TIW
     Route: 058
     Dates: start: 20250722, end: 20250722
  6. BERINERT [Suspect]
     Active Substance: HUMAN C1-ESTERASE INHIBITOR
     Indication: Hereditary angioedema
     Dosage: 3000 IU, BIW
     Route: 058
  7. BERINERT [Suspect]
     Active Substance: HUMAN C1-ESTERASE INHIBITOR
     Indication: Prophylaxis
     Dosage: 2000 IU, BIW
     Route: 058
  8. BERINERT [Suspect]
     Active Substance: HUMAN C1-ESTERASE INHIBITOR
     Dosage: 2000 IU, BIW
     Route: 058
  9. BERINERT [Suspect]
     Active Substance: HUMAN C1-ESTERASE INHIBITOR
     Dosage: 7000 IU/KG, BIW
     Route: 065
  10. BERINERT [Suspect]
     Active Substance: HUMAN C1-ESTERASE INHIBITOR
     Dosage: 7000 IU/KG, TIW
     Route: 058
  11. TAKHZYRO [Suspect]
     Active Substance: LANADELUMAB-FLYO
     Route: 065
  12. XOLAIR [Suspect]
     Active Substance: OMALIZUMAB
     Route: 065
  13. BERINERT [Suspect]
     Active Substance: HUMAN C1-ESTERASE INHIBITOR
     Indication: Hereditary angioedema
     Route: 042
  14. BERINERT [Suspect]
     Active Substance: HUMAN C1-ESTERASE INHIBITOR
     Indication: Hereditary angioedema
     Route: 042
  15. BERINERT [Suspect]
     Active Substance: HUMAN C1-ESTERASE INHIBITOR
     Route: 042
  16. BERINERT [Suspect]
     Active Substance: HUMAN C1-ESTERASE INHIBITOR
     Route: 042

REACTIONS (27)
  - Hereditary angioedema [Unknown]
  - Anaemia [Unknown]
  - Anaemia [Unknown]
  - Anaemia [Unknown]
  - Hereditary angioedema [Unknown]
  - Hereditary angioedema [Recovering/Resolving]
  - Hereditary angioedema [Recovering/Resolving]
  - Anaphylactic reaction [Recovered/Resolved]
  - Central venous catheterisation [Recovering/Resolving]
  - Hereditary angioedema [Recovering/Resolving]
  - Hereditary angioedema [Recovering/Resolving]
  - Hereditary angioedema [Recovering/Resolving]
  - Hereditary angioedema [Recovering/Resolving]
  - Hereditary angioedema [Recovering/Resolving]
  - Illness [Unknown]
  - Malaise [Unknown]
  - Haemoglobin decreased [Unknown]
  - Weight increased [Recovering/Resolving]
  - Malaise [Recovered/Resolved]
  - Therapy interrupted [Unknown]
  - Product dose omission issue [Recovering/Resolving]
  - Insurance issue [Recovered/Resolved]
  - Inappropriate schedule of product administration [Recovering/Resolving]
  - Product use issue [Recovering/Resolving]
  - Insurance issue [Recovering/Resolving]
  - Therapy interrupted [Unknown]
  - Asthma [Recovering/Resolving]

NARRATIVE: CASE EVENT DATE: 20250101
